FAERS Safety Report 9626762 (Version 10)
Quarter: 2016Q4

REPORT INFORMATION
  Report Type: Spontaneous
  Country: US (occurrence: US)
  Receive Date: 20131016
  Receipt Date: 20161031
  Transmission Date: 20170207
  Serious: Yes (Hospitalization, Other)
  Sender: FDA-Public Use
  Company Number: US-GLAXOSMITHKLINE-A1045406A

PATIENT
  Age: 78 Year
  Sex: Female

DRUGS (19)
  1. METFORMIN [Concomitant]
     Active Substance: METFORMIN HYDROCHLORIDE
  2. ADVAIR HFA [Suspect]
     Active Substance: FLUTICASONE PROPIONATE\SALMETEROL XINAFOATE
     Indication: ASTHMA
     Dosage: 500/50 REDUCED TO 100/50
     Route: 055
     Dates: start: 2000
  3. ADVAIR HFA [Suspect]
     Active Substance: FLUTICASONE PROPIONATE\SALMETEROL XINAFOATE
     Dosage: 100/50 UG
     Dates: start: 1997
  4. FOLIC ACID. [Concomitant]
     Active Substance: FOLIC ACID
  5. MEDROL [Concomitant]
     Active Substance: METHYLPREDNISOLONE
  6. IRON [Concomitant]
     Active Substance: IRON
  7. MICARDIS [Concomitant]
     Active Substance: TELMISARTAN
  8. VENTOLIN HFA [Suspect]
     Active Substance: ALBUTEROL SULFATE
     Indication: ASTHMA
     Dosage: UNK
     Dates: start: 1982
  9. NORVASC [Concomitant]
     Active Substance: AMLODIPINE BESYLATE
  10. ACETAMINOPHEN AND HYDROCODONE BITARTRATE [Concomitant]
  11. ADVAIR HFA [Suspect]
     Active Substance: FLUTICASONE PROPIONATE\SALMETEROL XINAFOATE
     Dosage: UNK, U
  12. NASONEX [Concomitant]
     Active Substance: MOMETASONE FUROATE
  13. HALFPRIN LOW DOSE [Concomitant]
     Active Substance: ASPIRIN
  14. OMEPRAZOLE. [Concomitant]
     Active Substance: OMEPRAZOLE
  15. BREO ELLIPTA [Concomitant]
     Active Substance: FLUTICASONE FUROATE\VILANTEROL TRIFENATATE
     Dosage: UNK
     Dates: start: 201608
  16. LEVOTHYROXINE. [Concomitant]
     Active Substance: LEVOTHYROXINE
  17. METOPROLOL TARTRATE. [Concomitant]
     Active Substance: METOPROLOL TARTRATE
  18. PROVENTIL [Concomitant]
     Active Substance: ALBUTEROL
     Route: 055
  19. CLONIDINE. [Concomitant]
     Active Substance: CLONIDINE

REACTIONS (25)
  - Aortic stenosis [Unknown]
  - Cerebrovascular accident [Unknown]
  - Weight increased [Unknown]
  - Stent placement [Unknown]
  - Shoulder arthroplasty [Recovering/Resolving]
  - Osteoporosis [Unknown]
  - Bone disorder [Recovered/Resolved]
  - Wheezing [Unknown]
  - Diabetes mellitus [Unknown]
  - Mobility decreased [Recovering/Resolving]
  - Herpes zoster [Unknown]
  - Coronary artery occlusion [Recovered/Resolved]
  - Knee arthroplasty [Unknown]
  - Dysphonia [Unknown]
  - Cardiac valve disease [Recovered/Resolved]
  - Weight decreased [Unknown]
  - Aortic valve replacement [Unknown]
  - Sleep apnoea syndrome [Unknown]
  - Vomiting [Unknown]
  - Candida infection [Recovered/Resolved]
  - Aspiration [Unknown]
  - Dyspnoea [Unknown]
  - Hypertension [Unknown]
  - Arthralgia [Unknown]
  - Claustrophobia [Unknown]

NARRATIVE: CASE EVENT DATE: 20110620
